FAERS Safety Report 9057531 (Version 1)
Quarter: 2013Q1

REPORT INFORMATION
  Report Type: Spontaneous
  Country: US (occurrence: None)
  Receive Date: 20130204
  Receipt Date: 20130204
  Transmission Date: 20140127
  Serious: Yes (Life-Threatening, Hospitalization, Disabling)
  Sender: FDA-Public Use
  Company Number: None

PATIENT
  Age: 68 Year
  Sex: Male
  Weight: 86.18 kg

DRUGS (1)
  1. KEPPRA [Suspect]
     Indication: CONVULSION
     Route: 042
     Dates: start: 20080901, end: 20081001

REACTIONS (5)
  - Delusion [None]
  - Confusional state [None]
  - Loss of consciousness [None]
  - Convulsion [None]
  - Memory impairment [None]
